FAERS Safety Report 5227227-3 (Version None)
Quarter: 2007Q1

REPORT INFORMATION
  Report Type: 
  Country: None (occurrence: None)
  Receive Date: 20070202
  Receipt Date: 20070123
  Transmission Date: 20070707
  Serious: Yes (Disabling)
  Sender: FDA-Public Use
  Company Number: GB-GLAXOSMITHKLINE-B0456443A

PATIENT
  Age: 47 Year
  Sex: Male
  Weight: 76 kg

DRUGS (5)
  1. PAROXETINE HYDROCHLORIDE [Suspect]
     Indication: ANXIETY
     Route: 048
     Dates: start: 19971101, end: 20051101
  2. AMLODIPINE [Concomitant]
     Indication: HYPERTENSION
     Route: 048
     Dates: start: 20040901, end: 20060501
  3. BUDESONIDE [Concomitant]
     Indication: ASTHMA
     Dosage: 200MCG TWICE PER DAY
     Route: 048
     Dates: start: 20040701
  4. OMEPRAZOLE [Concomitant]
     Dates: start: 19980601
  5. SALBUTAMOL [Concomitant]
     Indication: ASTHMA
     Route: 048
     Dates: start: 20040501

REACTIONS (7)
  - AFFECT LABILITY [None]
  - ANGER [None]
  - DEPERSONALISATION [None]
  - DRUG WITHDRAWAL SYNDROME [None]
  - PRURITUS [None]
  - RESTLESS LEGS SYNDROME [None]
  - SUICIDAL IDEATION [None]
